FAERS Safety Report 8571675-0 (Version None)
Quarter: 2012Q3

REPORT INFORMATION
  Report Type: 
  Country: None (occurrence: None)
  Receive Date: 20120806
  Receipt Date: 20120726
  Transmission Date: 20120928
  Serious: Yes (Hospitalization)
  Sender: FDA-Public Use
  Company Number: US-JNJFOC-20120714965

PATIENT
  Sex: Female
  Weight: 80.29 kg

DRUGS (5)
  1. DURAGESIC-100 [Suspect]
     Route: 062
     Dates: start: 20090101
  2. DURAGESIC-100 [Suspect]
     Indication: ARTHRALGIA
     Route: 062
     Dates: start: 20090101
  3. PERCOCET [Concomitant]
     Indication: PAIN
     Route: 065
  4. DURAGESIC-100 [Suspect]
     Indication: BONE PAIN
     Route: 062
  5. DURAGESIC-100 [Suspect]
     Route: 062

REACTIONS (6)
  - THROMBOSIS [None]
  - HYPERHIDROSIS [None]
  - PAIN [None]
  - CELLULITIS [None]
  - IRON DEFICIENCY [None]
  - PRODUCT QUALITY ISSUE [None]
